FAERS Safety Report 9054317 (Version 1)
Quarter: 2013Q1

REPORT INFORMATION
  Report Type: Spontaneous
  Country: FR (occurrence: FR)
  Receive Date: 20130208
  Receipt Date: 20130208
  Transmission Date: 20140127
  Serious: Yes (Hospitalization)
  Sender: FDA-Public Use
  Company Number: FR-ASTRAZENECA-2013SE07277

PATIENT
  Age: 29005 Day
  Sex: Male

DRUGS (7)
  1. ZESTORETIC [Suspect]
     Indication: HYPERTENSION
     Dosage: 20/12.5 MG, DAILY
     Route: 048
     Dates: end: 20121203
  2. PROFENID [Suspect]
     Route: 050
     Dates: start: 20121128, end: 20121203
  3. FENOFIBRATE [Concomitant]
  4. CHIBROPROSCAR [Concomitant]
  5. ZYPREXA [Concomitant]
  6. NORSET [Concomitant]
  7. NORDAZ [Concomitant]

REACTIONS (3)
  - Malocclusion [Unknown]
  - Faecal vomiting [Unknown]
  - Renal failure acute [Recovering/Resolving]
